FAERS Safety Report 10072144 (Version 2)
Quarter: 2014Q2

REPORT INFORMATION
  Report Type: Spontaneous
  Country: US (occurrence: US)
  Receive Date: 20140411
  Receipt Date: 20140411
  Transmission Date: 20141212
  Serious: Yes (Other)
  Sender: FDA-Public Use
  Company Number: US-ROCHE-1362170

PATIENT
  Sex: 0

DRUGS (9)
  1. XOLAIR [Suspect]
     Indication: PRODUCT USED FOR UNKNOWN INDICATION
     Route: 065
  2. XOLAIR [Suspect]
     Route: 065
     Dates: start: 20131123
  3. XOLAIR [Suspect]
     Route: 065
     Dates: start: 20131220
  4. XOLAIR [Suspect]
     Route: 065
     Dates: start: 20140117
  5. XOLAIR [Suspect]
     Route: 065
     Dates: start: 20140215
  6. SINGULAIR [Concomitant]
     Route: 048
  7. ADVAIR [Concomitant]
     Dosage: 1 PUFF
     Route: 048
  8. PROAIR (UNITED STATES) [Concomitant]
     Dosage: 2 PUFFS PRN
     Route: 048
  9. MICROGESTIN [Concomitant]
     Route: 048

REACTIONS (1)
  - Anaphylactic reaction [Unknown]
